FAERS Safety Report 26205147 (Version 1)
Quarter: 2025Q4

REPORT INFORMATION
  Report Type: Spontaneous
  Country: EU (occurrence: EU)
  Receive Date: 20251228
  Receipt Date: 20251228
  Transmission Date: 20260119
  Serious: Yes (Other)
  Sender: TEVA
  Company Number: None

PATIENT
  Age: 42 Year
  Sex: Female

DRUGS (1)
  1. AJOVY [Suspect]
     Active Substance: FREMANEZUMAB-VFRM
     Indication: Migraine
     Dosage: ROUTE OF ADMINISTRATION: INJECTION
     Route: 065
     Dates: start: 20250416, end: 20250917

REACTIONS (4)
  - Self-injurious ideation [Recovered/Resolved]
  - Anxiety [Recovered/Resolved]
  - Derealisation [Recovered/Resolved]
  - Panic attack [Recovered/Resolved]

NARRATIVE: CASE EVENT DATE: 20250101
